FAERS Safety Report 15704486 (Version 1)
Quarter: 2018Q4

REPORT INFORMATION
  Report Type: Spontaneous
  Country: CA (occurrence: CA)
  Receive Date: 20181210
  Receipt Date: 20181210
  Transmission Date: 20190205
  Serious: Yes (Other)
  Sender: FDA-Public Use
  Company Number: CA-ORION CORPORATION ORION PHARMA-TREX2018-3618

PATIENT
  Age: 52 Year
  Sex: Female

DRUGS (4)
  1. SYNTHROID [Concomitant]
     Active Substance: LEVOTHYROXINE SODIUM
     Route: 065
  2. METHOTREXATE (TRADE NAME UNKNOWN) [Suspect]
     Active Substance: METHOTREXATE
     Indication: RHEUMATOID ARTHRITIS
     Route: 065
  3. SIMPONI [Concomitant]
     Active Substance: GOLIMUMAB
     Route: 065
     Dates: start: 201507, end: 201811
  4. VOLTAREN [Concomitant]
     Active Substance: DICLOFENAC SODIUM
     Route: 065

REACTIONS (2)
  - Drug ineffective [Unknown]
  - Drug intolerance [Unknown]
